FAERS Safety Report 13001265 (Version 1)
Quarter: 2016Q4

REPORT INFORMATION
  Report Type: Spontaneous
  Country: US (occurrence: US)
  Receive Date: 20161206
  Receipt Date: 20161206
  Transmission Date: 20170207
  Serious: No
  Sender: FDA-Public Use
  Company Number: US-PFIZER INC-2016556958

PATIENT
  Age: 64 Year

DRUGS (25)
  1. DICLOFENAC SODIUM. [Suspect]
     Active Substance: DICLOFENAC SODIUM
     Dosage: UNK
  2. BACITRACIN/POLYMYXIN [Suspect]
     Active Substance: BACITRACIN ZINC\POLYMYXIN B SULFATE
     Dosage: UNK
  3. THIORIDAZINE HCL [Suspect]
     Active Substance: THIORIDAZINE HYDROCHLORIDE
     Dosage: UNK
  4. CHLORDIAZEPOXIDE HCL [Suspect]
     Active Substance: CHLORDIAZEPOXIDE HYDROCHLORIDE
     Dosage: UNK
  5. TRAMADOL HCL [Suspect]
     Active Substance: TRAMADOL HYDROCHLORIDE
     Dosage: UNK
  6. CARISOPRODOL AND ASPIRIN [Suspect]
     Active Substance: ASPIRIN\CARISOPRODOL
     Dosage: UNK
  7. KETOPROFEN. [Suspect]
     Active Substance: KETOPROFEN
     Dosage: UNK
  8. PENTAZOCINE LACTATE [Suspect]
     Active Substance: PENTAZOCINE LACTATE
     Dosage: UNK
  9. CHLORPROMAZINE. [Suspect]
     Active Substance: CHLORPROMAZINE
     Dosage: UNK
  10. CYCLOBENZAPRINE [Suspect]
     Active Substance: CYCLOBENZAPRINE
     Dosage: UNK
  11. SALSALATE. [Suspect]
     Active Substance: SALSALATE
     Dosage: UNK
  12. CHLORZOXAZONE. [Suspect]
     Active Substance: CHLORZOXAZONE
     Dosage: UNK
  13. SULINDAC. [Suspect]
     Active Substance: SULINDAC
     Dosage: UNK
  14. CODEINE [Suspect]
     Active Substance: CODEINE
     Dosage: UNK
  15. MEPROBAMATE-ASPIRIN [Suspect]
     Active Substance: ASPIRIN\MEPROBAMATE
     Dosage: UNK
  16. THIORIDAZINE [Suspect]
     Active Substance: THIORIDAZINE
     Dosage: UNK
  17. TALWIN [Suspect]
     Active Substance: PENTAZOCINE LACTATE
     Dosage: UNK
  18. ORPHENADRINE [Suspect]
     Active Substance: ORPHENADRINE
     Dosage: UNK
  19. BUTALBITAL, ASPIRIN, AND CAFFEINE [Suspect]
     Active Substance: ASPIRIN\BUTALBITAL\CAFFEINE
     Dosage: UNK
  20. DEMEROL [Suspect]
     Active Substance: MEPERIDINE HYDROCHLORIDE
     Dosage: UNK
  21. ETODOLAC. [Suspect]
     Active Substance: ETODOLAC
     Dosage: UNK
  22. HALOPERIDOL. [Suspect]
     Active Substance: HALOPERIDOL
     Dosage: UNK
  23. VOLTAREN [Suspect]
     Active Substance: DICLOFENAC SODIUM
     Dosage: UNK
  24. NAPROXEN. [Suspect]
     Active Substance: NAPROXEN
     Dosage: UNK
  25. EQUAGESIC [Suspect]
     Active Substance: ASPIRIN\MEPROBAMATE
     Dosage: UNK

REACTIONS (1)
  - Drug hypersensitivity [Unknown]
